FAERS Safety Report 9006962 (Version 1)
Quarter: 2013Q1

REPORT INFORMATION
  Report Type: Spontaneous
  Country: GB (occurrence: CA)
  Receive Date: 20130110
  Receipt Date: 20130110
  Transmission Date: 20140127
  Serious: Yes (Life-Threatening, Hospitalization, Disabling, Other)
  Sender: FDA-Public Use
  Company Number: GB-TEVA-358878ISR

PATIENT
  Age: 60 Year
  Sex: Male
  Weight: 108 kg

DRUGS (39)
  1. VINCRISTINE [Suspect]
     Indication: DIFFUSE LARGE B-CELL LYMPHOMA
     Route: 040
     Dates: start: 20111205
  2. DOXORUBICIN [Suspect]
     Indication: DIFFUSE LARGE B-CELL LYMPHOMA
     Route: 042
     Dates: start: 20111205
  3. PREDNISOLONE [Suspect]
     Indication: DIFFUSE LARGE B-CELL LYMPHOMA
     Route: 048
     Dates: start: 20111205
  4. OBINUTUZUMAB [Suspect]
     Indication: DIFFUSE LARGE B-CELL LYMPHOMA
     Route: 042
     Dates: start: 20111205, end: 20120514
  5. OBINUTUZUMAB [Suspect]
     Dosage: 250ML AT A CONCENTRATION OF 3.64MG/ML
     Dates: start: 20120514
  6. CYCLOPHOSPHAMIDE [Suspect]
     Indication: DIFFUSE LARGE B-CELL LYMPHOMA
     Route: 042
     Dates: start: 20111205
  7. KETOROLAC [Concomitant]
     Indication: PAIN
     Dates: start: 20120707, end: 20120725
  8. AVAPRO [Concomitant]
     Indication: HYPERTENSION
     Dates: start: 20111118
  9. VITAMIN B12 [Concomitant]
     Indication: VITAMIN B12 DEFICIENCY
     Dates: start: 20120326
  10. SULFADIAZINE [Concomitant]
     Indication: BLISTER
     Dates: start: 20120327
  11. COLCHICINE [Concomitant]
     Indication: PAIN
     Dates: start: 20120714, end: 20120714
  12. FENTANYL [Concomitant]
     Indication: PAIN
     Dates: start: 20120707, end: 20120709
  13. MORPHINE [Concomitant]
     Indication: PAIN
     Dates: start: 20120707, end: 20120725
  14. DOCUSATE SODIUM [Concomitant]
     Indication: CONSTIPATION
     Dates: start: 20120707, end: 20120725
  15. HEPARIN SODIUM [Concomitant]
     Indication: THROMBOSIS
     Dates: start: 20120703, end: 20120714
  16. POTASSIUM CHLORIDE [Concomitant]
     Indication: BLOOD POTASSIUM DECREASED
     Dates: start: 20120703, end: 20120706
  17. SODIUM CHLORIDE [Concomitant]
     Indication: DEHYDRATION
     Dates: start: 20120719, end: 20120721
  18. MOMETASONE [Concomitant]
     Indication: NASAL CONGESTION
     Dates: start: 20120714, end: 20120725
  19. ASCORBIC ACID [Concomitant]
     Dates: start: 20111118
  20. ENOXAPARIN [Concomitant]
     Dates: start: 20120129, end: 20120129
  21. GRANISETRON [Concomitant]
     Dates: start: 20111205, end: 20120515
  22. RANITIDINE [Concomitant]
     Dates: start: 20111205, end: 20120515
  23. DIPHENHYDRAMINE [Concomitant]
     Dates: start: 20111205, end: 20120515
  24. ACETAMINOPHEN [Concomitant]
     Dates: start: 20111205, end: 20120515
  25. VITAMIN D [Concomitant]
     Dates: start: 20111128
  26. GLUCOSAMINE SULPHATE [Concomitant]
  27. OXYCOCET [Concomitant]
     Indication: PAIN IN EXTREMITY
     Dates: start: 20120703, end: 20120704
  28. SOLU-MEDROL [Concomitant]
     Indication: HYPOTENSION
     Dates: start: 20111216, end: 20111216
  29. INSULIN ISOPHANE [Concomitant]
     Indication: DIABETES MELLITUS
  30. SAXAGLIPTIN HYDROCHLORIDE [Concomitant]
     Indication: DIABETES MELLITUS
  31. PIOGLITAZONE HYDROCHLORIDE [Concomitant]
     Indication: DIABETES MELLITUS
     Dates: start: 20120625
  32. METFORMIN [Concomitant]
     Indication: DIABETES MELLITUS
  33. HUMULIN [Concomitant]
     Indication: DIABETES MELLITUS
     Dates: start: 20120109, end: 20120109
  34. ALEVE [Concomitant]
     Indication: PAIN IN EXTREMITY
     Dates: start: 20111108
  35. CRESTOR [Concomitant]
     Indication: HYPERCHOLESTEROLAEMIA
  36. FENOFIBRATE [Concomitant]
     Indication: HYPERCHOLESTEROLAEMIA
     Dates: start: 20120725
  37. FLUDROCORTISONE [Concomitant]
     Indication: PYREXIA
     Dates: start: 20120109, end: 20120109
  38. HYDROCORTISONE [Concomitant]
     Dates: start: 20120109, end: 20120109
  39. CLAVULIN [Concomitant]
     Indication: CELLULITIS

REACTIONS (13)
  - Acute myocardial infarction [Not Recovered/Not Resolved]
  - Hypotension [Recovered/Resolved]
  - Cardiomyopathy [Not Recovered/Not Resolved]
  - Adrenal insufficiency [Recovered/Resolved]
  - White blood cell count decreased [Recovered/Resolved]
  - Fatigue [Recovered/Resolved]
  - Chills [Recovered/Resolved]
  - Cellulitis [Recovered/Resolved]
  - Febrile neutropenia [Recovered/Resolved]
  - Pyrexia [Recovered/Resolved]
  - Constipation [Recovered/Resolved]
  - Addison^s disease [Recovered/Resolved]
  - Erythema [Unknown]
